FAERS Safety Report 16998665 (Version 2)
Quarter: 2019Q4

REPORT INFORMATION
  Report Type: Spontaneous
  Country: US (occurrence: US)
  Receive Date: 20191106
  Receipt Date: 20191126
  Transmission Date: 20200122
  Serious: Yes (Life-Threatening, Hospitalization, Other)
  Sender: FDA-Public Use
  Company Number: US-LUPIN PHARMACEUTICALS INC.-2019-07131

PATIENT
  Age: 67 Year
  Sex: Female

DRUGS (2)
  1. METHYLPREDNISOLONE. [Suspect]
     Active Substance: METHYLPREDNISOLONE
     Indication: BURSITIS
     Dosage: UNK
     Route: 030
  2. LIDOCAINE. [Concomitant]
     Active Substance: LIDOCAINE
     Indication: BURSITIS
     Dosage: UNK
     Route: 030

REACTIONS (1)
  - Anaphylactic reaction [Unknown]
